FAERS Safety Report 25519380 (Version 1)
Quarter: 2025Q3

REPORT INFORMATION
  Report Type: Spontaneous
  Country: EU (occurrence: EU)
  Receive Date: 20250704
  Receipt Date: 20250704
  Transmission Date: 20251021
  Serious: Yes (Life-Threatening)
  Sender: MERCK SHARP & DOHME LLC
  Company Number: EU-009507513-2301399

PATIENT
  Sex: Female

DRUGS (4)
  1. BRIDION [Suspect]
     Active Substance: SUGAMMADEX SODIUM
     Indication: Neuromuscular blockade reversal
  2. BRIDION [Suspect]
     Active Substance: SUGAMMADEX SODIUM
     Indication: Neuromuscular blockade reversal
  3. BRIDION [Suspect]
     Active Substance: SUGAMMADEX SODIUM
     Indication: Neuromuscular blockade reversal
  4. ROCURONIUM [Suspect]
     Active Substance: ROCURONIUM BROMIDE
     Indication: Neuromuscular blocking therapy

REACTIONS (5)
  - Recurrence of neuromuscular blockade [Unknown]
  - Drug half-life increased [Unknown]
  - Incorrect product administration duration [Unknown]
  - Drug-disease interaction [Unknown]
  - Drug hypersensitivity [Unknown]
